FAERS Safety Report 8328011-4 (Version None)
Quarter: 2012Q2

REPORT INFORMATION
  Report Type: 
  Country: None (occurrence: None)
  Receive Date: 20120430
  Receipt Date: 20120416
  Transmission Date: 20120825
  Serious: Yes (Hospitalization)
  Sender: FDA-Public Use
  Company Number: 2012-001522

PATIENT
  Age: 63 Year
  Sex: Female
  Weight: 54 kg

DRUGS (3)
  1. ALENDRONATE SODIUM [Suspect]
     Indication: OSTEOPOROSIS
     Dosage: 70 MG ONCE WEEKLY
  2. RISEDRONATE SODIUM [Suspect]
     Indication: OSTEOPOROSIS
     Dosage: 35 MG ONCE, WEEKLY
  3. CALCITRIOL [Concomitant]

REACTIONS (15)
  - TENDERNESS [None]
  - IMPAIRED HEALING [None]
  - FRACTURE NONUNION [None]
  - OSTEOCALCIN DECREASED [None]
  - ABASIA [None]
  - PAIN [None]
  - PAIN IN EXTREMITY [None]
  - FEMUR FRACTURE [None]
  - DRUG INEFFECTIVE [None]
  - URINE CALCIUM INCREASED [None]
  - OSTEOPOROTIC FRACTURE [None]
  - BONE MARROW RETICULIN FIBROSIS [None]
  - STRESS FRACTURE [None]
  - PATHOLOGICAL FRACTURE [None]
  - LABORATORY TEST ABNORMAL [None]
